FAERS Safety Report 25811526 (Version 1)
Quarter: 2025Q3

REPORT INFORMATION
  Report Type: Report from Study
  Country: US (occurrence: US)
  Receive Date: 20250917
  Receipt Date: 20250917
  Transmission Date: 20251020
  Serious: No
  Sender: SUNOVION
  Company Number: US-SUMITOMO PHARMA SWITZERLAND GMBH-2025SPA011555

PATIENT
  Age: 82 Year
  Sex: Male

DRUGS (15)
  1. ORGOVYX [Suspect]
     Active Substance: RELUGOLIX
     Indication: Prostate cancer
     Route: 048
  2. ORGOVYX [Suspect]
     Active Substance: RELUGOLIX
     Route: 048
  3. ABIRATERONE [Concomitant]
     Active Substance: ABIRATERONE
  4. ASPIRIN [Concomitant]
     Active Substance: ASPIRIN
  5. ATORVASTATIN [Concomitant]
     Active Substance: ATORVASTATIN
  6. LOSARTAN [Concomitant]
     Active Substance: LOSARTAN
  7. MELOXICAM [Concomitant]
     Active Substance: MELOXICAM
  8. PREDNISONE [Concomitant]
     Active Substance: PREDNISONE
  9. TRAMADOL [Concomitant]
     Active Substance: TRAMADOL
  10. HERBALS\SAW PALMETTO [Concomitant]
     Active Substance: HERBALS\SAW PALMETTO
  11. Prostate support [Concomitant]
  12. MAGNESIUM [Concomitant]
     Active Substance: MAGNESIUM
  13. Fiber laxative [Concomitant]
  14. COENZYME Q10 [Concomitant]
     Active Substance: DIETARY SUPPLEMENT\UBIDECARENONE
  15. COD LIVER OIL [Concomitant]
     Active Substance: COD LIVER OIL

REACTIONS (1)
  - Fatigue [Unknown]
